FAERS Safety Report 5731018-4 (Version None)
Quarter: 2008Q2

REPORT INFORMATION
  Report Type: 
  Country: None (occurrence: None)
  Receive Date: 20080505
  Receipt Date: 20080428
  Transmission Date: 20081010
  Serious: Yes (Death, Hospitalization)
  Sender: FDA-Public Use
  Company Number: 163-20785-08040148

PATIENT
  Age: 74 Year
  Sex: Male

DRUGS (3)
  1. THALOMID [Suspect]
     Indication: MULTIPLE MYELOMA
     Dosage: 100 MEQ, 1 IN 1 D, ORAL; 200 MG, 1 IN 1 D, ORAL; 200 MG, 4 IN 1 D, ORAL
     Route: 048
     Dates: start: 20080101, end: 20080201
  2. THALOMID [Suspect]
     Indication: MULTIPLE MYELOMA
     Dosage: 100 MEQ, 1 IN 1 D, ORAL; 200 MG, 1 IN 1 D, ORAL; 200 MG, 4 IN 1 D, ORAL
     Route: 048
     Dates: start: 20080201, end: 20080301
  3. THALOMID [Suspect]
     Indication: MULTIPLE MYELOMA
     Dosage: 100 MEQ, 1 IN 1 D, ORAL; 200 MG, 1 IN 1 D, ORAL; 200 MG, 4 IN 1 D, ORAL
     Route: 048
     Dates: start: 20080402, end: 20080401

REACTIONS (1)
  - CARDIAC DISORDER [None]
